FAERS Safety Report 24247353 (Version 2)
Quarter: 2025Q2

REPORT INFORMATION
  Report Type: Report from Study
  Country: US (occurrence: US)
  Receive Date: 20240826
  Receipt Date: 20250616
  Transmission Date: 20250717
  Serious: Yes (Other)
  Sender: ABBVIE
  Company Number: US-ABBVIE-5890158

PATIENT
  Age: 77 Year
  Sex: Female

DRUGS (2)
  1. RINVOQ [Suspect]
     Active Substance: UPADACITINIB
     Indication: Rheumatoid arthritis
     Route: 048
     Dates: start: 20230710
  2. RINVOQ [Suspect]
     Active Substance: UPADACITINIB
     Indication: Rheumatoid arthritis
     Route: 048
     Dates: start: 20230710

REACTIONS (5)
  - Burns third degree [Recovering/Resolving]
  - Road traffic accident [Recovering/Resolving]
  - Memory impairment [Unknown]
  - Fall [Recovered/Resolved with Sequelae]
  - Balance disorder [Recovered/Resolved with Sequelae]

NARRATIVE: CASE EVENT DATE: 20230901
